FAERS Safety Report 14370019 (Version 1)
Quarter: 2018Q1

REPORT INFORMATION
  Report Type: Other
  Country: JP (occurrence: JP)
  Receive Date: 20180110
  Receipt Date: 20180110
  Transmission Date: 20180509
  Serious: Yes (Other)
  Sender: FDA-Public Use
  Company Number: JP-DEXPHARM-20180004

PATIENT
  Age: 27 Year
  Sex: Female
  Weight: 48.6 kg

DRUGS (3)
  1. LEVETIRACETAM. [Suspect]
     Active Substance: LEVETIRACETAM
     Indication: GENERALISED TONIC-CLONIC SEIZURE
  2. FOLIC ACID. [Concomitant]
     Active Substance: FOLIC ACID
  3. LAMOTRIGINE. [Suspect]
     Active Substance: LAMOTRIGINE

REACTIONS (2)
  - Symptom masked [Recovered/Resolved]
  - Drug ineffective [Unknown]
